FAERS Safety Report 11722602 (Version 1)
Quarter: 2015Q4

REPORT INFORMATION
  Report Type: Spontaneous
  Country: US (occurrence: US)
  Receive Date: 20151111
  Receipt Date: 20151111
  Transmission Date: 20160304
  Serious: No
  Sender: FDA-Public Use
  Company Number: US-PFIZER INC-2014101131

PATIENT
  Age: 59 Year
  Sex: Female
  Weight: 118 kg

DRUGS (1)
  1. LYRICA [Suspect]
     Active Substance: PREGABALIN
     Dosage: 200 MG, 3X/DAY

REACTIONS (4)
  - Influenza [Unknown]
  - Dyspnoea [Unknown]
  - Malaise [Unknown]
  - Nasopharyngitis [Unknown]
